FAERS Safety Report 10732688 (Version 1)
Quarter: 2015Q1

REPORT INFORMATION
  Report Type: Spontaneous
  Country: US (occurrence: None)
  Receive Date: 20150120
  Receipt Date: 20150120
  Transmission Date: 20150721
  Serious: Yes (Other)
  Sender: FDA-Public Use
  Company Number: 1734747-2015-99924

PATIENT
  Sex: Male

DRUGS (15)
  1. LOSARTAN [Concomitant]
     Active Substance: LOSARTAN
  2. ASPIRIN. [Concomitant]
     Active Substance: ASPIRIN
  3. PHENOFIBRATES [Concomitant]
  4. SYNTHROID [Concomitant]
     Active Substance: LEVOTHYROXINE SODIUM
  5. CALCITROL [Concomitant]
     Active Substance: CALCITRIOL
  6. LIBERTY CYCLER [Concomitant]
     Active Substance: DEVICE
  7. LOVASTATIN. [Concomitant]
     Active Substance: LOVASTATIN
  8. LIBERTY CYCLER SET [Concomitant]
  9. FISH OIL [Concomitant]
     Active Substance: FISH OIL
  10. ALLOPURINOL. [Concomitant]
     Active Substance: ALLOPURINOL
  11. INSULIN [Concomitant]
     Active Substance: INSULIN NOS
  12. SODIUM BICARBONATE. [Concomitant]
     Active Substance: SODIUM BICARBONATE
  13. RENVELA [Concomitant]
     Active Substance: SEVELAMER CARBONATE
  14. DELFLEX WITH DEXTROSE 2.5% LOW MAGNESIUM LOW CALCIUM [Suspect]
     Active Substance: CALCIUM CHLORIDE\DEXTROSE MONOHYDRATE\MAGNESIUM CHLORIDE\SODIUM CHLORIDE\SODIUM LACTATE
     Indication: PERITONEAL DIALYSIS
     Dosage: DAILY IP
     Route: 033
     Dates: start: 20150103, end: 20150112
  15. LODIPINE [Concomitant]

REACTIONS (6)
  - Azotaemia [None]
  - Muscular weakness [None]
  - Haemoglobin decreased [None]
  - Feeling hot [None]
  - Product quality issue [None]
  - Paraesthesia [None]

NARRATIVE: CASE EVENT DATE: 20150103
